FAERS Safety Report 7522196-5 (Version None)
Quarter: 2011Q2

REPORT INFORMATION
  Report Type: 
  Country: None (occurrence: None)
  Receive Date: 20110523
  Receipt Date: 20110506
  Transmission Date: 20111010
  Serious: Yes (Other)
  Sender: FDA-Public Use
  Company Number: 2011028617

PATIENT
  Age: 16 Year
  Sex: Male
  Weight: 58.9676 kg

DRUGS (10)
  1. PULMOCORT (PULMOCORTISON INY) [Concomitant]
  2. XOPENEX [Concomitant]
  3. ADVAIR DISKUS 100/50 [Concomitant]
  4. HIZENTRA [Suspect]
     Indication: HYPOGAMMAGLOBULINAEMIA
     Dosage: (8 G 1X/WEEK, 40 ML VIA 2 SITES OVER 30 MINUTES SUBCUTANEOUS), (SUBCUTANEOUS)
     Route: 058
     Dates: start: 20110117
  5. HIZENTRA [Suspect]
     Indication: HYPOGAMMAGLOBULINAEMIA
     Dosage: (8 G 1X/WEEK, 40 ML VIA 2 SITES OVER 30 MINUTES SUBCUTANEOUS), (SUBCUTANEOUS)
     Route: 058
     Dates: start: 20110426
  6. STRATTERA [Concomitant]
  7. TENEX [Concomitant]
  8. ALBUTEROL [Concomitant]
  9. MOTRIN [Concomitant]
  10. SEROQUEL [Concomitant]

REACTIONS (2)
  - PNEUMONIA BACTERIAL [None]
  - NASAL CONGESTION [None]
